FAERS Safety Report 14472881 (Version 9)
Quarter: 2018Q3

REPORT INFORMATION
  Report Type: Report from Study
  Country: VE (occurrence: VE)
  Receive Date: 20180201
  Receipt Date: 20180824
  Transmission Date: 20181010
  Serious: Yes (Life-Threatening, Other)
  Sender: FDA-Public Use
  Company Number: VE-INCYTE CORPORATION-2018IN000777

PATIENT

DRUGS (8)
  1. JAKAVI [Suspect]
     Active Substance: RUXOLITINIB
     Dosage: 10 MG, BID (TWICE DAILY)
     Route: 048
     Dates: start: 201505
  2. JAKAVI [Suspect]
     Active Substance: RUXOLITINIB
     Indication: PRIMARY MYELOFIBROSIS
     Dosage: 40 MG, QD (20 MG IN THE MORNING AND 20 MG AT NIGHT)
     Route: 048
     Dates: start: 20150515
  3. JAKAVI [Suspect]
     Active Substance: RUXOLITINIB
     Dosage: 20 MG, QD (10 MG IN THE MORNING AND 10 MG AT NIGHT)
     Route: 048
  4. XARELTO [Concomitant]
     Active Substance: RIVAROXABAN
     Indication: PRODUCT USED FOR UNKNOWN INDICATION
     Dosage: UNK
     Route: 065
  5. JAKAVI [Suspect]
     Active Substance: RUXOLITINIB
     Dosage: 20 MG, QD
     Route: 048
  6. MESTINON [Concomitant]
     Active Substance: PYRIDOSTIGMINE BROMIDE
     Indication: MYASTHENIA GRAVIS
     Dosage: 120 MG, QD (DAILY)
     Route: 065
  7. ACETYLSALICYLIC ACID [Concomitant]
     Active Substance: ASPIRIN
     Indication: PRODUCT USED FOR UNKNOWN INDICATION
     Dosage: UNK
     Route: 065
  8. ERYTHROPOIETIN [Concomitant]
     Active Substance: ERYTHROPOIETIN
     Indication: PLATELET DISORDER
     Dosage: 30.000 U, QW
     Route: 065

REACTIONS (9)
  - Neutrophil count increased [Unknown]
  - Platelet count decreased [Unknown]
  - Anaemia [Unknown]
  - Bone marrow failure [Unknown]
  - Thrombocytopenia [Unknown]
  - Haemoglobin decreased [Unknown]
  - Splenomegaly [Unknown]
  - Feeling abnormal [Unknown]
  - Therapeutic response delayed [Unknown]

NARRATIVE: CASE EVENT DATE: 20150625
